FAERS Safety Report 7809101-9 (Version None)
Quarter: 2011Q4

REPORT INFORMATION
  Report Type: 
  Country: None (occurrence: None)
  Receive Date: 20111012
  Receipt Date: 20111004
  Transmission Date: 20120403
  Serious: No
  Sender: FDA-Public Use
  Company Number: US-UCBSA-8046945

PATIENT
  Age: 40 Year
  Sex: Female

DRUGS (5)
  1. MUCINEX [Concomitant]
     Indication: BRONCHITIS CHRONIC
  2. KEPPRA [Suspect]
     Route: 048
  3. KEPPRA [Suspect]
     Indication: EPILEPSY
  4. FOLIC ACID [Concomitant]
     Indication: PREGNANCY
  5. PRENATAL VITAMINS [Concomitant]
     Indication: PREGNANCY

REACTIONS (10)
  - CONVULSION [None]
  - ABDOMINAL DISTENSION [None]
  - NECK PAIN [None]
  - RED BLOOD CELL COUNT DECREASED [None]
  - DERMATITIS [None]
  - PREGNANCY [None]
  - BRONCHITIS CHRONIC [None]
  - NASOPHARYNGITIS [None]
  - VITAMIN D DECREASED [None]
  - HEADACHE [None]
